FAERS Safety Report 24023817 (Version 2)
Quarter: 2024Q3

REPORT INFORMATION
  Report Type: Report from Study
  Country: IT (occurrence: IT)
  Receive Date: 20240627
  Receipt Date: 20240710
  Transmission Date: 20241017
  Serious: No
  Sender: ROCHE
  Company Number: IT-ROCHE-3545006

PATIENT
  Age: 63 Year
  Sex: Male
  Weight: 63.0 kg

DRUGS (7)
  1. ALECTINIB [Suspect]
     Active Substance: ALECTINIB
     Indication: Non-small cell lung cancer metastatic
     Route: 048
     Dates: start: 20230117
  2. LEVETIRACETAM [Concomitant]
     Active Substance: LEVETIRACETAM
     Route: 048
     Dates: start: 20230227
  3. MINOCYCLINE [Concomitant]
     Active Substance: MINOCYCLINE HYDROCHLORIDE
     Indication: Rash
     Route: 048
     Dates: start: 20240102, end: 20240117
  4. IBUPROFEN [Concomitant]
     Active Substance: IBUPROFEN
     Indication: Spinal pain
     Route: 048
     Dates: start: 20240229
  5. DENOSUMAB [Concomitant]
     Active Substance: DENOSUMAB
     Indication: Fracture
     Dosage: NEXT DOSE ON: 29/FEB/2024
     Route: 058
     Dates: start: 20240102, end: 20240102
  6. CHOLECALCIFEROL [Concomitant]
     Active Substance: CHOLECALCIFEROL
     Route: 048
     Dates: start: 20231102
  7. GENTALYN BETA [Concomitant]
     Indication: Rash
     Route: 061
     Dates: start: 20231005

REACTIONS (2)
  - Hypocalcaemia [Recovered/Resolved]
  - Spinal pain [Recovering/Resolving]

NARRATIVE: CASE EVENT DATE: 20240201
